FAERS Safety Report 10457125 (Version 4)
Quarter: 2015Q1

REPORT INFORMATION
  Report Type: Spontaneous
  Country: BR (occurrence: BR)
  Receive Date: 20140916
  Receipt Date: 20150121
  Transmission Date: 20150720
  Serious: Yes (Hospitalization, Other)
  Sender: FDA-Public Use
  Company Number: BR-PFIZER INC-2014252100

PATIENT
  Age: 77 Year
  Sex: Female
  Weight: 71 kg

DRUGS (7)
  1. DORFLEX [Concomitant]
     Active Substance: CAFFEINE\DIPYRONE\ORPHENADRINE
     Indication: FIBROMYALGIA
  2. MILGAMMA [Concomitant]
     Active Substance: VITAMIN B
     Indication: HYPOAESTHESIA
     Dosage: 2 TABLETS OF UNSPECIFIED DOSAGE PER DAY
  3. SIMVASTATIN CALCIUM [Concomitant]
     Indication: BLOOD PRESSURE ABNORMAL
  4. DORFLEX [Concomitant]
     Active Substance: CAFFEINE\DIPYRONE\ORPHENADRINE
     Indication: MYALGIA
     Dosage: UNK
  5. SIMVASTATIN CALCIUM [Concomitant]
     Indication: BLOOD CHOLESTEROL INCREASED
     Dosage: 1 TABLET AT NIGHT
     Dates: start: 2007
  6. LYRICA [Suspect]
     Active Substance: PREGABALIN
     Indication: FIBROMYALGIA
     Dosage: 150 MG, DAILY
     Route: 048
     Dates: start: 2013
  7. DOSTINEX [Suspect]
     Active Substance: CABERGOLINE
     Indication: BRAIN NEOPLASM
     Dosage: 5 MG, 2X/WEEK
     Route: 048
     Dates: start: 201409

REACTIONS (8)
  - Head injury [Not Recovered/Not Resolved]
  - Vitamin D decreased [Not Recovered/Not Resolved]
  - Feeling abnormal [Not Recovered/Not Resolved]
  - Cold sweat [Not Recovered/Not Resolved]
  - Hypertension [Not Recovered/Not Resolved]
  - Brain neoplasm [Not Recovered/Not Resolved]
  - Drug ineffective [Not Recovered/Not Resolved]
  - Heart rate increased [Not Recovered/Not Resolved]

NARRATIVE: CASE EVENT DATE: 20140811
